FAERS Safety Report 22536817 (Version 1)
Quarter: 2023Q2

REPORT INFORMATION
  Report Type: Report from Study
  Country: US (occurrence: US)
  Receive Date: 20230608
  Receipt Date: 20230608
  Transmission Date: 20230721
  Serious: Yes (Other)
  Sender: FDA-Public Use
  Company Number: US-UCBSA-2023028597

PATIENT
  Sex: Female

DRUGS (4)
  1. LEVETIRACETAM [Suspect]
     Active Substance: LEVETIRACETAM
     Indication: Seizure
     Dosage: 1000 MILLIGRAM, 2X/DAY (BID)
  2. LEVETIRACETAM [Suspect]
     Active Substance: LEVETIRACETAM
     Dosage: 1500 MILLIGRAM
  3. VIMPAT [Suspect]
     Active Substance: LACOSAMIDE
     Indication: Seizure
     Dosage: 200 MILLIGRAM
  4. VIMPAT [Suspect]
     Active Substance: LACOSAMIDE
     Dosage: 200 MILLIGRAM
     Dates: end: 20230605

REACTIONS (9)
  - Generalised tonic-clonic seizure [Unknown]
  - Petit mal epilepsy [Unknown]
  - Anxiety [Unknown]
  - Irritability [Unknown]
  - Loss of personal independence in daily activities [Unknown]
  - Frustration tolerance decreased [Unknown]
  - Insomnia [Unknown]
  - Depersonalisation/derealisation disorder [Unknown]
  - Depression [Unknown]
